FAERS Safety Report 24136552 (Version 1)
Quarter: 2024Q3

REPORT INFORMATION
  Report Type: Spontaneous
  Country: US (occurrence: None)
  Receive Date: 20240724
  Receipt Date: 20240724
  Transmission Date: 20241017
  Serious: Yes (Hospitalization)
  Sender: Public
  Company Number: None

PATIENT
  Age: 66 Year
  Sex: Male

DRUGS (1)
  1. LITHIUM [Suspect]
     Active Substance: LITHIUM
     Indication: Mood swings
     Dosage: FREQUENCY : DAILY;?
     Route: 048
     Dates: start: 20200129

REACTIONS (2)
  - Fall [None]
  - Drug level increased [None]

NARRATIVE: CASE EVENT DATE: 20240527
